FAERS Safety Report 5758822-0 (Version None)
Quarter: 2008Q2

REPORT INFORMATION
  Report Type: 
  Country: None (occurrence: None)
  Receive Date: 20080530
  Receipt Date: 20080514
  Transmission Date: 20081010
  Serious: Yes (Hospitalization)
  Sender: FDA-Public Use
  Company Number: 8032871

PATIENT
  Age: 25 Year
  Sex: Female

DRUGS (3)
  1. KEPPRA [Suspect]
     Dosage: 1.5 G 2/D
  2. KEPPRA [Suspect]
     Dosage: 40 G /D
  3. CLOBAZAM [Suspect]

REACTIONS (3)
  - EPIGASTRIC DISCOMFORT [None]
  - OVERDOSE [None]
  - VOMITING [None]
